FAERS Safety Report 25921929 (Version 1)
Quarter: 2025Q4

REPORT INFORMATION
  Report Type: Spontaneous
  Country: US (occurrence: US)
  Receive Date: 20251015
  Receipt Date: 20251015
  Transmission Date: 20260118
  Serious: No
  Sender: AXSOME THERAPEUTICS
  Company Number: US-AXS-AXS202510-001732

PATIENT
  Age: 23 Year
  Sex: Female

DRUGS (1)
  1. AUVELITY [Suspect]
     Active Substance: BUPROPION HYDROCHLORIDE\DEXTROMETHORPHAN HYDROBROMIDE
     Indication: Product used for unknown indication
     Route: 050

REACTIONS (4)
  - Bruxism [Unknown]
  - Pain in jaw [Unknown]
  - Alopecia [Unknown]
  - Fatigue [Unknown]
